FAERS Safety Report 18629861 (Version 2)
Quarter: 2020Q4

REPORT INFORMATION
  Report Type: Report from Study
  Country: AR (occurrence: AR)
  Receive Date: 20201217
  Receipt Date: 20201230
  Transmission Date: 20210114
  Serious: No
  Sender: FDA-Public Use
  Company Number: AR-BRISTOL-MYERS SQUIBB COMPANY-BMS-2020-107189

PATIENT
  Sex: Female

DRUGS (3)
  1. APIXABAN [Suspect]
     Active Substance: APIXABAN
     Indication: CEREBROVASCULAR ACCIDENT PROPHYLAXIS
     Dosage: 5 MILLIGRAM, PER DAY
     Route: 065
     Dates: start: 20190717
  2. CORBIS [Concomitant]
     Indication: ARRHYTHMIA
     Dosage: 5 MILLIGRAM, PER DAY
     Route: 065
  3. ATLANSIL [AMIODARONE] [Concomitant]
     Indication: ARRHYTHMIA
     Dosage: 1 TABLET, PER DAY
     Route: 065

REACTIONS (1)
  - No adverse event [Unknown]
